FAERS Safety Report 16286539 (Version 1)
Quarter: 2019Q2

REPORT INFORMATION
  Report Type: Spontaneous
  Country: US (occurrence: US)
  Receive Date: 20190507
  Receipt Date: 20190507
  Transmission Date: 20190711
  Serious: Yes (Hospitalization)
  Sender: FDA-Public Use
  Company Number: None

PATIENT
  Sex: Male

DRUGS (2)
  1. PULMOZYME [Suspect]
     Active Substance: DORNASE ALFA
     Indication: DISEASE COMPLICATION
     Route: 055
     Dates: start: 20151024
  2. CAYSTON, ZENPEP [Concomitant]

REACTIONS (1)
  - Physical examination [None]
